FAERS Safety Report 11695966 (Version 1)
Quarter: 2015Q4

REPORT INFORMATION
  Report Type: Spontaneous
  Country: US (occurrence: US)
  Receive Date: 20151104
  Receipt Date: 20151104
  Transmission Date: 20160304
  Serious: Yes (Hospitalization)
  Sender: FDA-Public Use
  Company Number: US-ASTRAZENECA-2015SF05141

PATIENT
  Age: 1 Year
  Sex: Female
  Weight: 10.9 kg

DRUGS (6)
  1. SYNAGIS [Suspect]
     Active Substance: PALIVIZUMAB
     Indication: LUNG DISORDER
     Dosage: MONTHLY
     Route: 030
     Dates: start: 201312, end: 201404
  2. CEFDINIR. [Concomitant]
     Active Substance: CEFDINIR
     Indication: MALAISE
     Route: 048
     Dates: start: 20151026
  3. MONTELUKAST [Concomitant]
     Active Substance: MONTELUKAST SODIUM
     Route: 048
     Dates: start: 201404
  4. CEFDINIR. [Concomitant]
     Active Substance: CEFDINIR
     Indication: INFECTION
     Route: 048
     Dates: start: 20151026
  5. QVAR [Concomitant]
     Active Substance: BECLOMETHASONE DIPROPIONATE
     Route: 055
     Dates: start: 201404
  6. VENTOLYN [Concomitant]
     Route: 055
     Dates: start: 201404

REACTIONS (7)
  - Pulmonary congestion [Unknown]
  - Cough [Unknown]
  - Adverse event [Unknown]
  - Pneumonia [Unknown]
  - Wheezing [Unknown]
  - Rhinorrhoea [Unknown]
  - Respiratory syncytial virus infection [Unknown]

NARRATIVE: CASE EVENT DATE: 2014
